FAERS Safety Report 5719088-0 (Version None)
Quarter: 2008Q2

REPORT INFORMATION
  Report Type: 
  Country: None (occurrence: None)
  Receive Date: 20080423
  Receipt Date: 20080416
  Transmission Date: 20081010
  Serious: Yes (Other)
  Sender: FDA-Public Use
  Company Number: 2008SP006376

PATIENT
  Age: 35 Year
  Sex: Female

DRUGS (3)
  1. TEMODAL (TEMOZOLOMIDE) (TEMOZOLOMIDE) [Suspect]
     Indication: GLIOBLASTOMA MULTIFORME
     Dosage: 75 MG/M2; QD; PO; 150 MG/M2; QD; PO; 200 MG/M2; QD; PO
     Route: 048
     Dates: start: 20070220, end: 20070405
  2. TEMODAL (TEMOZOLOMIDE) (TEMOZOLOMIDE) [Suspect]
     Indication: GLIOBLASTOMA MULTIFORME
     Dosage: 75 MG/M2; QD; PO; 150 MG/M2; QD; PO; 200 MG/M2; QD; PO
     Route: 048
     Dates: start: 20070618, end: 20070827
  3. TEMODAL (TEMOZOLOMIDE) (TEMOZOLOMIDE) [Suspect]
     Indication: GLIOBLASTOMA MULTIFORME
     Dosage: 75 MG/M2; QD; PO; 150 MG/M2; QD; PO; 200 MG/M2; QD; PO
     Route: 048
     Dates: start: 20070507

REACTIONS (2)
  - GENERAL PHYSICAL HEALTH DETERIORATION [None]
  - THROMBOCYTOPENIA [None]
